FAERS Safety Report 6544279-9 (Version None)
Quarter: 2010Q1

REPORT INFORMATION
  Report Type: 
  Country: None (occurrence: None)
  Receive Date: 20100115
  Receipt Date: 20091228
  Transmission Date: 20100710
  Serious: Yes (Hospitalization)
  Sender: FDA-Public Use
  Company Number: IDA-00321

PATIENT
  Age: 40 Year
  Sex: Female

DRUGS (2)
  1. INDERAL [Suspect]
     Dosage: 10 MG TID UNK FORMULATION: UNKNOWN
  2. RISPERDAL (RISERIDONE) [Concomitant]

REACTIONS (1)
  - PARKINSONISM [None]
